FAERS Safety Report 15569486 (Version 1)
Quarter: 2018Q4

REPORT INFORMATION
  Report Type: Spontaneous
  Country: GB (occurrence: GB)
  Receive Date: 20181031
  Receipt Date: 20181031
  Transmission Date: 20190205
  Serious: Yes (Disabling)
  Sender: FDA-Public Use
  Company Number: None

PATIENT
  Age: 45 Year
  Sex: Male
  Weight: 81.9 kg

DRUGS (3)
  1. VENTOLIN [Concomitant]
     Active Substance: ALBUTEROL SULFATE
  2. PARACETAMOL [Concomitant]
     Active Substance: ACETAMINOPHEN
  3. CIPROFLOXACIN. [Suspect]
     Active Substance: CIPROFLOXACIN
     Indication: FOOD POISONING
     Route: 048
     Dates: start: 20181021, end: 20181026

REACTIONS (5)
  - Product complaint [None]
  - Joint range of motion decreased [None]
  - Arthralgia [None]
  - Myalgia [None]
  - Drug ineffective [None]

NARRATIVE: CASE EVENT DATE: 20181025
